FAERS Safety Report 17952985 (Version 5)
Quarter: 2021Q1

REPORT INFORMATION
  Report Type: Report from Study
  Country: US (occurrence: US)
  Receive Date: 20200627
  Receipt Date: 20210123
  Transmission Date: 20210419
  Serious: Yes (Other)
  Sender: FDA-Public Use
  Company Number: US-UCBSA-2020021643

PATIENT
  Age: 58 Year
  Sex: Female
  Weight: 70 kg

DRUGS (4)
  1. CERTOLIZUMAB PEGOL [Suspect]
     Active Substance: CERTOLIZUMAB PEGOL
     Indication: RHEUMATOID ARTHRITIS
     Dosage: 400 MILLIGRAM, EV 4 WEEKS
     Dates: start: 202003, end: 202006
  2. PLAQUENIL S [Concomitant]
     Active Substance: HYDROXYCHLOROQUINE SULFATE
  3. CORTISONE [Concomitant]
     Active Substance: CORTISONE
     Indication: PRODUCT USED FOR UNKNOWN INDICATION
     Dosage: UNK
  4. PREDNISONE. [Concomitant]
     Active Substance: PREDNISONE
     Indication: PRODUCT USED FOR UNKNOWN INDICATION
     Dosage: UNK
     Route: 048

REACTIONS (14)
  - Chest injury [Recovered/Resolved]
  - Injection site bruising [Recovered/Resolved]
  - Staphylococcal infection [Recovered/Resolved]
  - Urticaria [Recovered/Resolved]
  - Injection site nodule [Recovered/Resolved]
  - Joint injury [Recovered/Resolved]
  - Ligament rupture [Recovered/Resolved]
  - Product availability issue [Unknown]
  - Weight increased [Recovered/Resolved]
  - Injection site erythema [Recovered/Resolved]
  - Peripheral swelling [Recovered/Resolved]
  - Skin disorder [Recovered/Resolved]
  - Skin mass [Recovered/Resolved]
  - Therapy interrupted [Unknown]

NARRATIVE: CASE EVENT DATE: 2020
